FAERS Safety Report 22535915 (Version 4)
Quarter: 2023Q4

REPORT INFORMATION
  Report Type: Report from Study
  Country: CA (occurrence: CA)
  Receive Date: 20230608
  Receipt Date: 20231207
  Transmission Date: 20240110
  Serious: Yes (Life-Threatening, Hospitalization)
  Sender: FDA-Public Use
  Company Number: CA-002147023-NVSC2023CA128044

PATIENT
  Sex: Female

DRUGS (3)
  1. GILENYA [Suspect]
     Active Substance: FINGOLIMOD HYDROCHLORIDE
     Indication: Relapsing-remitting multiple sclerosis
     Dosage: UNK
     Route: 048
     Dates: start: 20200210, end: 20230421
  2. GILENYA [Suspect]
     Active Substance: FINGOLIMOD HYDROCHLORIDE
     Dosage: UNK
     Route: 048
     Dates: start: 20230423
  3. GILENYA [Suspect]
     Active Substance: FINGOLIMOD HYDROCHLORIDE
     Dosage: UNK
     Route: 048
     Dates: start: 20230814

REACTIONS (9)
  - Apparent death [Unknown]
  - Coma [Unknown]
  - Influenza [Unknown]
  - Respiratory failure [Unknown]
  - Acute kidney injury [Unknown]
  - Sepsis [Unknown]
  - Dyspnoea [Unknown]
  - Fatigue [Unknown]
  - Nasopharyngitis [Unknown]

NARRATIVE: CASE EVENT DATE: 20230401
